FAERS Safety Report 9438652 (Version 1)
Quarter: 2013Q3

REPORT INFORMATION
  Report Type: Spontaneous
  Country: US (occurrence: US)
  Receive Date: 20130802
  Receipt Date: 20130802
  Transmission Date: 20140515
  Serious: No
  Sender: FDA-Public Use
  Company Number: US-BAYER-2013-093350

PATIENT
  Sex: Female
  Weight: 81.63 kg

DRUGS (5)
  1. BETASERON [Suspect]
     Indication: MULTIPLE SCLEROSIS
     Dosage: UNK
     Route: 058
     Dates: start: 2002, end: 2006
  2. EFFEXOR [Concomitant]
  3. ESTROSTEP [Concomitant]
  4. MELATONIN [Concomitant]
  5. VITAMIN D [Concomitant]

REACTIONS (1)
  - Influenza like illness [None]
